FAERS Safety Report 13112413 (Version 1)
Quarter: 2017Q1

REPORT INFORMATION
  Report Type: Spontaneous
  Country: BR (occurrence: BR)
  Receive Date: 20170113
  Receipt Date: 20170113
  Transmission Date: 20170428
  Serious: Yes (Hospitalization, Other)
  Sender: FDA-Public Use
  Company Number: BR-009507513-1701BRA004446

PATIENT
  Age: 41 Year
  Sex: Female
  Weight: 51 kg

DRUGS (1)
  1. IMPLANON [Suspect]
     Active Substance: ETONOGESTREL
     Indication: CONTRACEPTION
     Dosage: UNK
     Route: 059
     Dates: start: 20140915

REACTIONS (8)
  - Internal haemorrhage [Recovered/Resolved]
  - Pregnancy on contraceptive [Recovered/Resolved]
  - Cyst rupture [Recovered/Resolved]
  - Abortion [Recovered/Resolved]
  - Fallopian tube operation [Recovered/Resolved]
  - Abdominal pain [Recovered/Resolved]
  - Oophorectomy [Recovered/Resolved]
  - Unintended pregnancy [Recovered/Resolved]

NARRATIVE: CASE EVENT DATE: 2016
